FAERS Safety Report 5455064-3 (Version None)
Quarter: 2007Q3

REPORT INFORMATION
  Report Type: 
  Country: None (occurrence: None)
  Receive Date: 20070913
  Receipt Date: 20070823
  Transmission Date: 20080115
  Serious: Yes (Other)
  Sender: FDA-Public Use
  Company Number: 6037462

PATIENT
  Age: 77 Year
  Sex: Male

DRUGS (2)
  1. CLARITHRCMYCIN(CLARITHRCMYCIN) [Suspect]
     Indication: BRONCHITIS
     Dosage: 400 MG (200 MG,2 IN 1 D); 200 MG (200 MG,L IN 1 D)
  2. DIGOXIN [Suspect]
     Indication: CARDIAC DISORDER
     Dosage: 0,05 MG (0,05 MG, 1IN 1 D)

REACTIONS (5)
  - ANOREXIA [None]
  - BRADYCARDIA [None]
  - CARDIOACTIVE DRUG LEVEL INCREASED [None]
  - DIARRHOEA [None]
  - DRUG INTERACTION [None]
